FAERS Safety Report 5523084-6 (Version None)
Quarter: 2007Q4

REPORT INFORMATION
  Report Type: 
  Country: None (occurrence: None)
  Receive Date: 20071121
  Receipt Date: 20071114
  Transmission Date: 20080405
  Serious: Yes (Hospitalization)
  Sender: FDA-Public Use
  Company Number: PHEH2007US14850

PATIENT
  Age: 87 Year
  Sex: Male

DRUGS (8)
  1. COUMADIN [Suspect]
     Dosage: 4 MG, BID
     Dates: start: 20070901
  2. PROTONIX [Concomitant]
     Dosage: UNK, UNK
  3. FLOMAX [Concomitant]
     Dosage: UNK, UNK
  4. FINASTERIDE [Concomitant]
     Dosage: UNK, UNK
  5. FLUTICASONE PROPIONATE [Concomitant]
     Dosage: UNK, UNK
  6. LIPITOR [Concomitant]
     Dosage: 10 MG, QD
  7. NORVASC [Concomitant]
     Dosage: 2.5 MG, QD
  8. DIOVAN [Suspect]
     Indication: HYPERTENSION
     Dosage: 160 MG, BID

REACTIONS (9)
  - ACCIDENTAL OVERDOSE [None]
  - BLOOD URINE PRESENT [None]
  - CHROMATURIA [None]
  - CONTUSION [None]
  - DRUG DISPENSING ERROR [None]
  - DRUG LEVEL INCREASED [None]
  - OEDEMA PERIPHERAL [None]
  - SWOLLEN TONGUE [None]
  - TONGUE DISCOLOURATION [None]
